FAERS Safety Report 20722841 (Version 3)
Quarter: 2022Q2

REPORT INFORMATION
  Report Type: Spontaneous
  Country: SE (occurrence: SE)
  Receive Date: 20220419
  Receipt Date: 20220523
  Transmission Date: 20220720
  Serious: Yes (Other)
  Sender: FDA-Public Use
  Company Number: SE-OCTA-GAM13822SE

PATIENT
  Age: 67 Year
  Sex: Male

DRUGS (1)
  1. OCTAGAM IMMUNE GLOBULIN (HUMAN) [Suspect]
     Active Substance: HUMAN IMMUNOGLOBULIN G
     Indication: Chronic inflammatory demyelinating polyradiculoneuropathy
     Route: 042
     Dates: start: 20211222, end: 20220324

REACTIONS (3)
  - Hepatitis B core antibody positive [Unknown]
  - Hepatitis B surface antibody positive [Unknown]
  - Hepatitis A antibody positive [Unknown]

NARRATIVE: CASE EVENT DATE: 20220331
